FAERS Safety Report 6337467-8 (Version None)
Quarter: 2009Q3

REPORT INFORMATION
  Report Type: 
  Country: None (occurrence: None)
  Receive Date: 20090901
  Receipt Date: 20090901
  Transmission Date: 20100115
  Serious: No
  Sender: FDA-Public Use
  Company Number: None

PATIENT
  Age: 38 Year
  Sex: Male
  Weight: 104.3273 kg

DRUGS (2)
  1. STRATTERA [Suspect]
     Indication: CONSTIPATION
     Dosage: 80MG DAILY PO
     Route: 048
     Dates: start: 20090813, end: 20090813
  2. STRATTERA [Suspect]
     Indication: CONSTIPATION
     Dosage: 80MG DAILY PO
     Route: 048
     Dates: start: 20090813, end: 20090826

REACTIONS (3)
  - CONSTIPATION [None]
  - HAEMATOCHEZIA [None]
  - PAIN [None]
